FAERS Safety Report 8121610-4 (Version None)
Quarter: 2012Q1

REPORT INFORMATION
  Report Type: 
  Country: None (occurrence: None)
  Receive Date: 20120203
  Receipt Date: 20120125
  Transmission Date: 20120608
  Serious: Yes (Hospitalization, Other)
  Sender: FDA-Public Use
  Company Number: BE-007524

PATIENT
  Age: 82 Year
  Sex: Male

DRUGS (7)
  1. ZESTRIL [Concomitant]
  2. FIRMAGON [Suspect]
     Indication: PROSTATE CANCER
     Dosage: (80 MG 1X/MONTH SUBCUTANEOUS)
     Route: 058
     Dates: start: 20110101
  3. LIPITOR [Concomitant]
  4. EZETIMIBE [Concomitant]
  5. GLUCOPHAGE [Concomitant]
  6. PLAVIX [Concomitant]
  7. GLUCOVANCE [Concomitant]

REACTIONS (5)
  - ORTHOPNOEA [None]
  - MUSCLE CONTRACTURE [None]
  - TACHYARRHYTHMIA [None]
  - DYSPNOEA [None]
  - INJECTION SITE REACTION [None]
